FAERS Safety Report 5888840-3 (Version None)
Quarter: 2008Q3

REPORT INFORMATION
  Report Type: 
  Country: None (occurrence: None)
  Receive Date: 20080916
  Receipt Date: 20080901
  Transmission Date: 20090109
  Serious: Yes (Other)
  Sender: FDA-Public Use
  Company Number: 100#03#2008-04393

PATIENT
  Age: 73 Year
  Sex: Male

DRUGS (2)
  1. TRAMADOL HCL [Suspect]
     Indication: BACK DISORDER
     Dosage: 1DF FOUR TIMES DAILY ORAL
     Route: 048
     Dates: start: 20080729, end: 20080801
  2. ANADIN EXTRA (ACETYLSALICYLIC ACID, CAFFEINE, PARACETAMOL) [Suspect]
     Indication: DRUG USE FOR UNKNOWN INDICATION
     Dosage: 2 TABLETS ORAL
     Route: 048
     Dates: start: 20080801, end: 20080801

REACTIONS (4)
  - DIZZINESS [None]
  - DRUG INTERACTION [None]
  - RASH PRURITIC [None]
  - TREMOR [None]
